FAERS Safety Report 25363813 (Version 1)
Quarter: 2025Q2

REPORT INFORMATION
  Report Type: Spontaneous
  Country: US (occurrence: None)
  Receive Date: 20250527
  Receipt Date: 20250527
  Transmission Date: 20250717
  Serious: Yes (Hospitalization)
  Sender: FDA-CTU
  Company Number: None

PATIENT
  Weight: 81.19 kg

DRUGS (9)
  1. ADSTILADRIN [Suspect]
     Active Substance: NADOFARAGENE FIRADENOVEC-VNCG
     Indication: Bladder cancer
     Route: 042
     Dates: start: 20250522
  2. ATORVASTATIN [Concomitant]
     Active Substance: ATORVASTATIN
  3. FEBUXOSTAT [Concomitant]
     Active Substance: FEBUXOSTAT
  4. PANTOPRAZOLE [Concomitant]
     Active Substance: PANTOPRAZOLE
  5. COZAAR [Concomitant]
     Active Substance: LOSARTAN POTASSIUM
  6. LATANOPROST [Concomitant]
     Active Substance: LATANOPROST
  7. OMEGA 3 [Concomitant]
     Active Substance: CAPSAICIN
  8. PREDNISOLONE ACETATE [Concomitant]
     Active Substance: PREDNISOLONE ACETATE
  9. VITAMINS [Concomitant]
     Active Substance: VITAMINS

REACTIONS (3)
  - Pancytopenia [None]
  - Adenovirus infection [None]
  - Pneumonia [None]

NARRATIVE: CASE EVENT DATE: 20250523
